FAERS Safety Report 7239471 (Version 5)
Quarter: 2014Q1

REPORT INFORMATION
  Report Type: Spontaneous
  Country: US (occurrence: US)
  Receive Date: 20100107
  Receipt Date: 20140312
  Transmission Date: 20141002
  Serious: Yes (Hospitalization)
  Sender: FDA-Public Use
  Company Number: US-ASTRAZENECA-2009SE33847

PATIENT
  Age: 93 Year
  Sex: Male
  Weight: 59 kg

DRUGS (8)
  1. SYMBICORT [Suspect]
     Dosage: 160 MCG / 4.5 MCG TWO PUFFS BID
     Route: 055
     Dates: start: 200911
  2. SYMBICORT [Suspect]
     Dosage: 160 MCG / 4.5 MCG TWO PUFFS AT NIGHT
     Route: 055
     Dates: start: 200911
  3. SYMBICORT [Suspect]
     Dosage: UNKNOWN
     Route: 055
     Dates: start: 200912
  4. ADVAIR [Concomitant]
  5. HEART MEDICATION [Concomitant]
     Indication: CARDIAC DISORDER
  6. DIABETES MEDICATIONS [Concomitant]
     Indication: DIABETES MELLITUS
  7. SLEEP MEDICATION [Concomitant]
     Indication: SLEEP DISORDER
  8. MANY OTHER MEDICATIONS [Concomitant]

REACTIONS (6)
  - Cardiac disorder [Unknown]
  - Dyspnoea [Unknown]
  - Weight decreased [Unknown]
  - Diabetes mellitus [Unknown]
  - Neuropathy peripheral [Unknown]
  - Intentional drug misuse [Unknown]
